FAERS Safety Report 8296855-3 (Version None)
Quarter: 2012Q2

REPORT INFORMATION
  Report Type: 
  Country: None (occurrence: None)
  Receive Date: 20120419
  Receipt Date: 20120411
  Transmission Date: 20120825
  Serious: Yes (Other)
  Sender: FDA-Public Use
  Company Number: US-BIOGENIDEC-2011BI004192

PATIENT
  Age: 37 Year
  Sex: Female

DRUGS (2)
  1. MULTI-VITAMINS [Concomitant]
  2. TYSABRI [Suspect]
     Indication: MULTIPLE SCLEROSIS
     Route: 042
     Dates: start: 20100308, end: 20101208

REACTIONS (2)
  - PREGNANCY [None]
  - BREECH PRESENTATION [None]
